FAERS Safety Report 20622572 (Version 5)
Quarter: 2022Q4

REPORT INFORMATION
  Report Type: Report from Study
  Country: US (occurrence: US)
  Receive Date: 20220322
  Receipt Date: 20221031
  Transmission Date: 20230113
  Serious: Yes (Other)
  Sender: FDA-Public Use
  Company Number: US-NOVARTISTESTPH-NVSC2022US064553

PATIENT
  Sex: Female
  Weight: 68.027 kg

DRUGS (3)
  1. TREPROSTINIL [Suspect]
     Active Substance: TREPROSTINIL
     Indication: Pulmonary arterial hypertension
     Dosage: 95 NG/KG/MIN, CONT
     Route: 058
  2. TREPROSTINIL [Suspect]
     Active Substance: TREPROSTINIL
     Dosage: 105 NG/KG/MIN,CONT
     Route: 058
     Dates: start: 20220318
  3. TREPROSTINIL [Suspect]
     Active Substance: TREPROSTINIL
     Dosage: 108 NG/KG/MIN,CONT
     Route: 058

REACTIONS (7)
  - Syncope [Unknown]
  - Pulmonary pain [Unknown]
  - Injection site pruritus [Unknown]
  - Injection site discomfort [Unknown]
  - Hypersensitivity [Unknown]
  - Fatigue [Unknown]
  - Rash [Unknown]
